FAERS Safety Report 9175041 (Version 2)
Quarter: 2013Q2

REPORT INFORMATION
  Report Type: Report from Study
  Country: US (occurrence: US)
  Receive Date: 20130320
  Receipt Date: 20130419
  Transmission Date: 20140414
  Serious: Yes (Other)
  Sender: FDA-Public Use
  Company Number: US-ABBOTT-13P-163-1062109-00

PATIENT
  Sex: Female
  Weight: 77.18 kg

DRUGS (5)
  1. HUMIRA PEN [Suspect]
     Indication: SARCOIDOSIS
     Dates: start: 2011, end: 201212
  2. METHOTREXATE [Concomitant]
     Indication: SARCOIDOSIS
  3. FOLIC ACID [Concomitant]
     Indication: PRODUCT USED FOR UNKNOWN INDICATION
  4. VITAMIN D [Concomitant]
     Indication: PRODUCT USED FOR UNKNOWN INDICATION
  5. PREDNISONE [Concomitant]
     Indication: SARCOIDOSIS

REACTIONS (2)
  - Tooth impacted [Recovered/Resolved]
  - Off label use [Not Recovered/Not Resolved]
